FAERS Safety Report 25539547 (Version 1)
Quarter: 2025Q3

REPORT INFORMATION
  Report Type: Spontaneous
  Country: GB (occurrence: GB)
  Receive Date: 20250710
  Receipt Date: 20250710
  Transmission Date: 20251020
  Serious: Yes (Disabling, Other)
  Sender: ELI LILLY AND COMPANY
  Company Number: None

PATIENT
  Age: 50 Year
  Sex: Female
  Weight: 101 kg

DRUGS (2)
  1. MOUNJARO [Suspect]
     Active Substance: TIRZEPATIDE
     Indication: Weight control
     Route: 065
     Dates: start: 20250422
  2. MOUNJARO [Suspect]
     Active Substance: TIRZEPATIDE
     Route: 065

REACTIONS (8)
  - Gout [Not Recovered/Not Resolved]
  - Gouty tophus [Not Recovered/Not Resolved]
  - Hepatic function abnormal [Unknown]
  - Renal impairment [Unknown]
  - Blood creatine abnormal [Unknown]
  - Blood thyroid stimulating hormone abnormal [Unknown]
  - Bursitis [Unknown]
  - Tendonitis [Unknown]

NARRATIVE: CASE EVENT DATE: 20250517
